FAERS Safety Report 9011856 (Version 2)
Quarter: 2014Q4

REPORT INFORMATION
  Report Type: Spontaneous
  Country: US (occurrence: None)
  Receive Date: 20121228
  Receipt Date: 20141001
  Transmission Date: 20150529
  Serious: Yes (Hospitalization, Other)
  Sender: FDA-Public Use
  Company Number: JPI-P-026818

PATIENT
  Age: 32 Year
  Sex: Female

DRUGS (3)
  1. XYREM [Suspect]
     Active Substance: SODIUM OXYBATE
     Indication: CATAPLEXY
     Route: 048
     Dates: start: 20100317
  2. EFFEXOR [Suspect]
     Active Substance: VENLAFAXINE HYDROCHLORIDE
     Indication: PRODUCT USED FOR UNKNOWN INDICATION
     Dates: start: 201207
  3. XYREM [Suspect]
     Active Substance: SODIUM OXYBATE
     Indication: NARCOLEPSY
     Route: 048
     Dates: start: 20100317

REACTIONS (10)
  - Sexual dysfunction [None]
  - Exposure during pregnancy [None]
  - Paraesthesia [None]
  - Cataplexy [None]
  - Dizziness [None]
  - Malaise [None]
  - Fall [None]
  - Hip fracture [None]
  - Pain in extremity [None]
  - Vomiting [None]

NARRATIVE: CASE EVENT DATE: 2011
